FAERS Safety Report 8725590 (Version 2)
Quarter: 2012Q4

REPORT INFORMATION
  Report Type: 
  Country: BR (occurrence: BR)
  Receive Date: 20120815
  Receipt Date: 20121005
  Transmission Date: 20130627
  Serious: Yes (Death, Hospitalization)
  Sender: FDA-Public Use
  Company Number: BR-PFIZER INC-2012198165

PATIENT
  Age: 97 Year
  Sex: Female

DRUGS (9)
  1. XALATAN [Suspect]
     Indication: INTRAOCULAR PRESSURE TEST ABNORMAL
     Dosage: 1.5 ug (one drop), 1x/day
     Route: 047
     Dates: start: 2011
  2. ALDACTONE [Suspect]
     Indication: HYPERTENSION
     Dosage: 1 DF (1 tablet), 1x/day
     Route: 048
  3. CITROL [Concomitant]
     Indication: RESTLESS LEGS SYNDROME
     Dosage: 1 DF (1 tablet), 1x/day
  4. DIOVAN [Concomitant]
     Dosage: 1 DF (1 tablet), 1x/day
  5. FUROSEMIDE [Concomitant]
     Indication: FLUID RETENTION
     Dosage: 1 DF (1 tablet), 2x/day
  6. ISOSORBIDE MONONITRATE [Concomitant]
     Indication: TACHYCARDIA
     Dosage: 1 DF (1 tablet), 2x/day
  7. OMEPRAZOLE [Concomitant]
     Indication: GASTRITIS
     Dosage: 1 DF (1 tablet), 1x/day
  8. PURAN T4 [Concomitant]
     Indication: THYROID DISORDER
     Dosage: 1 DF (1 tablet), 1x/day
  9. RIVOTRIL [Concomitant]
     Indication: SLEEP DISORDER
     Dosage: 1 DF (1 tablet), as needed

REACTIONS (2)
  - Death [Fatal]
  - Pneumonia [Unknown]
